FAERS Safety Report 7868850-7 (Version None)
Quarter: 2011Q4

REPORT INFORMATION
  Report Type: 
  Country: None (occurrence: None)
  Receive Date: 20111026
  Receipt Date: 20111026
  Transmission Date: 20120403
  Serious: Yes (Hospitalization)
  Sender: FDA-Public Use
  Company Number: None

PATIENT
  Sex: Female
  Weight: 50.4 kg

DRUGS (4)
  1. LEUCOVORIN CALCIUM [Suspect]
     Dosage: 2440 MG
     Dates: end: 20111019
  2. ELOXATIN [Suspect]
     Dosage: 520 MG
     Dates: end: 20111019
  3. BEVACIZUMAB (RHUMAB VEGF) [Suspect]
     Dosage: 780 MG
     Dates: end: 20111005
  4. FLUOROURACIL [Suspect]
     Dosage: 17140 MG
     Dates: end: 20111019

REACTIONS (1)
  - LARGE INTESTINE PERFORATION [None]
